FAERS Safety Report 20199325 (Version 1)
Quarter: 2021Q4

REPORT INFORMATION
  Report Type: Spontaneous
  Country: FR (occurrence: FR)
  Receive Date: 20211217
  Receipt Date: 20211217
  Transmission Date: 20220303
  Serious: Yes (Hospitalization)
  Sender: FDA-Public Use
  Company Number: None

PATIENT
  Age: 94 Year
  Sex: Male
  Weight: 48 kg

DRUGS (1)
  1. FLUCONAZOLE [Suspect]
     Active Substance: FLUCONAZOLE
     Indication: Peritonitis
     Dosage: 400 MILLIGRAM, BID, 400 MG X 2 /J
     Route: 041
     Dates: start: 20211025, end: 20211029

REACTIONS (3)
  - Encephalopathy [Unknown]
  - Renal failure [Unknown]
  - Overdose [Unknown]

NARRATIVE: CASE EVENT DATE: 20211029
